FAERS Safety Report 5748319-6 (Version None)
Quarter: 2008Q2

REPORT INFORMATION
  Report Type: 
  Country: None (occurrence: None)
  Receive Date: 20080523
  Receipt Date: 20080514
  Transmission Date: 20081010
  Serious: Yes (Other)
  Sender: FDA-Public Use
  Company Number: US-PFIZER INC-2008024101

PATIENT
  Sex: Male
  Weight: 143.8 kg

DRUGS (1)
  1. CHANTIX [Suspect]
     Indication: SMOKING CESSATION THERAPY
     Route: 060

REACTIONS (3)
  - ACTIVITIES OF DAILY LIVING IMPAIRED [None]
  - INTENTIONAL DRUG MISUSE [None]
  - MENTAL STATUS CHANGES [None]
